FAERS Safety Report 5876627-7 (Version None)
Quarter: 2008Q3

REPORT INFORMATION
  Report Type: 
  Country: None (occurrence: None)
  Receive Date: 20080908
  Receipt Date: 20080826
  Transmission Date: 20090109
  Serious: Yes (Hospitalization)
  Sender: FDA-Public Use
  Company Number: 231161J07USA

PATIENT
  Age: 42 Year
  Sex: Male

DRUGS (8)
  1. REBIF [Suspect]
     Indication: MULTIPLE SCLEROSIS
     Dosage: 44 MCG, 3 IN 1 WEEKS, SUBCUTANEOUS
     Route: 058
     Dates: start: 20070713, end: 20070917
  2. SYNTHROID [Concomitant]
  3. LISINOPRIL [Concomitant]
  4. CAPTOPRESS(CAPTOPRIL) [Concomitant]
  5. GABAPENTIN [Concomitant]
  6. HYDROCODONE (HYDROCODONE) [Concomitant]
  7. FLEXERIL [Concomitant]
  8. BLOOD THINNER (ALL OTHER THERAPEUTIC PRODUCTS) [Concomitant]

REACTIONS (10)
  - ALCOHOLISM [None]
  - BLOOD PRESSURE INADEQUATELY CONTROLLED [None]
  - COMA [None]
  - CONDITION AGGRAVATED [None]
  - DEPRESSION [None]
  - DIALYSIS [None]
  - GASTROINTESTINAL INFECTION [None]
  - HYPERTENSION [None]
  - INFLUENZA LIKE ILLNESS [None]
  - PANCREATITIS ACUTE [None]
